FAERS Safety Report 22645466 (Version 1)
Quarter: 2023Q2

REPORT INFORMATION
  Report Type: Spontaneous
  Country: US (occurrence: US)
  Receive Date: 20230627
  Receipt Date: 20230627
  Transmission Date: 20230722
  Serious: Yes (Hospitalization)
  Sender: FDA-Public Use
  Company Number: US-SA-2023SA186415

PATIENT
  Age: 71 Year
  Sex: Male
  Weight: 72.11 kg

DRUGS (7)
  1. DOCETAXEL [Suspect]
     Active Substance: DOCETAXEL
     Indication: Prostate cancer
     Dosage: 137 MG, Q3W
     Route: 042
     Dates: start: 20220328, end: 20220701
  2. ZIMBERELIMAB [Suspect]
     Active Substance: ZIMBERELIMAB
     Indication: Prostate cancer
     Dosage: 360 MG, Q3W
     Route: 042
     Dates: start: 20220328, end: 20220701
  3. PIOGLITAZONE [Concomitant]
     Active Substance: PIOGLITAZONE
     Indication: Type 2 diabetes mellitus
     Dosage: UNK
     Dates: start: 20200101
  4. GLIMEPIRIDE [Concomitant]
     Active Substance: GLIMEPIRIDE
     Indication: Type 2 diabetes mellitus
     Dosage: UNK
     Dates: start: 20200101
  5. ROCEPHIN [Concomitant]
     Active Substance: CEFTRIAXONE SODIUM
     Indication: Urinary tract infection
     Dosage: 1 G
     Route: 042
     Dates: start: 20220616, end: 20220620
  6. RESTORIL [Concomitant]
     Active Substance: TEMAZEPAM
     Indication: Insomnia
     Dosage: UNK
     Dates: start: 20220603
  7. LOSARTAN AND HYDROCHLOROTHIAZIDE [Concomitant]
     Active Substance: HYDROCHLOROTHIAZIDE\LOSARTAN POTASSIUM
     Indication: Hypertension
     Dosage: UNK

REACTIONS (10)
  - Acquired macroglossia [Recovered/Resolved]
  - Oedema peripheral [Recovered/Resolved]
  - Peripheral motor neuropathy [Recovered/Resolved]
  - Tongue oedema [Not Recovered/Not Resolved]
  - Venous thrombosis [Unknown]
  - SARS-CoV-2 test positive [Unknown]
  - Lung opacity [Unknown]
  - Dysphagia [Not Recovered/Not Resolved]
  - Fatigue [Not Recovered/Not Resolved]
  - Sinusitis [Unknown]

NARRATIVE: CASE EVENT DATE: 20220101
